FAERS Safety Report 7581218-6 (Version None)
Quarter: 2011Q2

REPORT INFORMATION
  Report Type: 
  Country: None (occurrence: None)
  Receive Date: 20110629
  Receipt Date: 20110616
  Transmission Date: 20111010
  Serious: Yes (Death)
  Sender: FDA-Public Use
  Company Number: CO-GENENTECH-320493

PATIENT
  Sex: Male

DRUGS (1)
  1. RITUXAN [Suspect]
     Indication: NON-HODGKIN'S LYMPHOMA
     Dosage: 700 MG, Q21D
     Route: 042
     Dates: start: 20101231, end: 20110521

REACTIONS (2)
  - PULMONARY EMBOLISM [None]
  - DEATH [None]
